APPROVED DRUG PRODUCT: TAUVID
Active Ingredient: FLORTAUCIPIR F-18
Strength: 50ML (8.1-51mCi/ML)
Dosage Form/Route: SOLUTION;INTRAVENOUS
Application: N212123 | Product #002
Applicant: AVID RADIOPHARMACEUTICALS INC
Approved: May 28, 2020 | RLD: Yes | RS: No | Type: DISCN

PATENTS:
Patent 8932557 | Expires: May 26, 2032